FAERS Safety Report 9230996 (Version 1)
Quarter: 2013Q1

REPORT INFORMATION
  Report Type: Spontaneous
  Country: US (occurrence: None)
  Receive Date: 20121031
  Receipt Date: 20121031
  Transmission Date: 20140127
  Serious: No
  Sender: FDA-Public Use
  Company Number: PHEH2012US014696

PATIENT
  Age: 51 Year
  Sex: Male
  Weight: 86.6 kg

DRUGS (1)
  1. GILENYA (FTY)CAPSULE, 0.5MG [Suspect]
     Indication: MULTIPLE SCLEROSIS
     Route: 048
     Dates: start: 20120725

REACTIONS (4)
  - Eyelid disorder [None]
  - Yawning [None]
  - Fatigue [None]
  - Somnolence [None]
